FAERS Safety Report 12890867 (Version 1)
Quarter: 2016Q4

REPORT INFORMATION
  Report Type: Spontaneous
  Country: None (occurrence: US)
  Receive Date: 20161025
  Receipt Date: 20161025
  Transmission Date: 20170207
  Serious: Yes (Other)
  Sender: FDA-Public Use
  Company Number: None

PATIENT
  Age: 41 Year
  Sex: Female

DRUGS (1)
  1. GILENYA [Suspect]
     Active Substance: FINGOLIMOD HYDROCHLORIDE
     Indication: MULTIPLE SCLEROSIS
     Dosage: 0.5MG CAP DAILY ORALLY
     Route: 048
     Dates: start: 20150224

REACTIONS (2)
  - White blood cell count decreased [None]
  - Therapy change [None]

NARRATIVE: CASE EVENT DATE: 20160902
